FAERS Safety Report 25214597 (Version 2)
Quarter: 2025Q2

REPORT INFORMATION
  Report Type: Spontaneous
  Country: US (occurrence: US)
  Receive Date: 20250418
  Receipt Date: 20250422
  Transmission Date: 20250717
  Serious: Yes (Other)
  Sender: PFIZER
  Company Number: US-MLMSERVICE-20250407-PI473356-00165-1

PATIENT
  Age: 75 Year
  Sex: Male

DRUGS (3)
  1. GEMCITABINE HYDROCHLORIDE [Suspect]
     Active Substance: GEMCITABINE HYDROCHLORIDE
     Indication: Bladder transitional cell carcinoma
     Route: 043
  2. DOCETAXEL [Concomitant]
     Active Substance: DOCETAXEL
     Indication: Bladder transitional cell carcinoma
  3. NIFEDIPINE [Concomitant]
     Active Substance: NIFEDIPINE
     Dosage: UNK, DAILY

REACTIONS (3)
  - Renal-limited thrombotic microangiopathy [Unknown]
  - Off label use [Unknown]
  - Off label use [Unknown]
